FAERS Safety Report 9024356 (Version 1)
Quarter: 2013Q1

REPORT INFORMATION
  Report Type: Spontaneous
  Country: US (occurrence: US)
  Receive Date: 20130121
  Receipt Date: 20130121
  Transmission Date: 20140127
  Serious: Yes (Other)
  Sender: FDA-Public Use
  Company Number: US-BAYER-2013-006730

PATIENT
  Age: 40 Year
  Sex: Female

DRUGS (9)
  1. YAZ [Suspect]
  2. ALLEGRA [Concomitant]
  3. PRILOSEC [Concomitant]
  4. ZOLOFT [Concomitant]
  5. VESICARE [SOLIFENACIN SUCCINATE] [Concomitant]
  6. FLONASE [Concomitant]
  7. ALBUTEROL [Concomitant]
  8. ADVAIR [Concomitant]
  9. ENOXAPARIN [Concomitant]

REACTIONS (1)
  - Thrombophlebitis superficial [None]
